FAERS Safety Report 5884283-7 (Version None)
Quarter: 2008Q3

REPORT INFORMATION
  Report Type: 
  Country: None (occurrence: None)
  Receive Date: 20080915
  Receipt Date: 20080904
  Transmission Date: 20090109
  Serious: Yes (Other)
  Sender: FDA-Public Use
  Company Number: JP-ASTRAZENECA-2003AP01905

PATIENT
  Age: 47 Year
  Sex: Female

DRUGS (7)
  1. NAROPIN [Suspect]
     Indication: EPIDURAL ANAESTHESIA
     Route: 008
     Dates: start: 20030508, end: 20030508
  2. DIPRIVAN [Concomitant]
     Route: 042
     Dates: start: 20030508, end: 20030508
  3. MUSCULAX [Concomitant]
     Route: 042
     Dates: start: 20030508, end: 20030508
  4. NEOSYNESIN [Concomitant]
     Route: 042
     Dates: start: 20030508, end: 20030508
  5. EPHEDRINE SUL CAP [Concomitant]
     Route: 042
     Dates: start: 20030508, end: 20030508
  6. ATROPINE SULFATE [Concomitant]
     Route: 042
     Dates: start: 20030508, end: 20030508
  7. VAGOSTIGMIN [Concomitant]
     Route: 042
     Dates: start: 20030508, end: 20030508

REACTIONS (1)
  - ANAESTHETIC COMPLICATION [None]
